FAERS Safety Report 9260349 (Version 2)
Quarter: 2013Q2

REPORT INFORMATION
  Report Type: Spontaneous
  Country: AT (occurrence: AT)
  Receive Date: 20130429
  Receipt Date: 20130529
  Transmission Date: 20140414
  Serious: Yes (Other)
  Sender: FDA-Public Use
  Company Number: PHHY2013AT041681

PATIENT
  Sex: Female

DRUGS (1)
  1. CO-DIOVAN [Suspect]
     Dosage: 0.5 DF, BID  (160 MG VALS/ 12.5MG HCTZ) (0.5 IN THE MORNING AND 0.5 IN THE EVENING)

REACTIONS (5)
  - Bone pain [Unknown]
  - Myalgia [Unknown]
  - Gait disturbance [Unknown]
  - Wrong technique in drug usage process [Unknown]
  - Arthralgia [Unknown]
